FAERS Safety Report 21249754 (Version 1)
Quarter: 2022Q3

REPORT INFORMATION
  Report Type: Spontaneous
  Country: US (occurrence: None)
  Receive Date: 20220823
  Receipt Date: 20220823
  Transmission Date: 20221026
  Serious: No
  Sender: FDA-Public Use
  Company Number: None

PATIENT
  Age: 36 Year
  Sex: Female

DRUGS (1)
  1. ZARXIO [Suspect]
     Active Substance: FILGRASTIM-SNDZ
     Dosage: OTHER FREQUENCY : OTHER;?
     Route: 058

REACTIONS (4)
  - Rash [None]
  - Fatigue [None]
  - Dizziness [None]
  - Heart rate increased [None]

NARRATIVE: CASE EVENT DATE: 20220823
